FAERS Safety Report 23190147 (Version 1)
Quarter: 2023Q4

REPORT INFORMATION
  Report Type: Spontaneous
  Country: US (occurrence: None)
  Receive Date: 20231116
  Receipt Date: 20231116
  Transmission Date: 20240109
  Serious: Yes (Hospitalization)
  Sender: FDA-Public Use
  Company Number: US-ROCHE-3456964

PATIENT
  Sex: Female

DRUGS (11)
  1. XOLAIR [Suspect]
     Active Substance: OMALIZUMAB
     Indication: Asthma
     Dosage: 75 MG/0.5 ML , AND 150MG/ML SYRINGE
     Route: 058
     Dates: start: 20230120
  2. XOLAIR [Suspect]
     Active Substance: OMALIZUMAB
  3. XOLAIR [Suspect]
     Active Substance: OMALIZUMAB
  4. DILTIAZEM [Concomitant]
     Active Substance: DILTIAZEM
  5. DUPIXENT [Concomitant]
     Active Substance: DUPILUMAB
  6. GABAPENTIN [Concomitant]
     Active Substance: GABAPENTIN
  7. PIMECROLIMUS [Concomitant]
     Active Substance: PIMECROLIMUS
  8. SINGULAIR [Concomitant]
     Active Substance: MONTELUKAST SODIUM
  9. TACROLIMUS [Concomitant]
     Active Substance: TACROLIMUS
  10. TRELEGY ELLIPTA [Concomitant]
     Active Substance: FLUTICASONE FUROATE\UMECLIDINIUM BROMIDE\VILANTEROL TRIFENATATE
  11. TRIAMCINOLONE [Concomitant]
     Active Substance: TRIAMCINOLONE

REACTIONS (1)
  - Excessive dynamic airway collapse [Unknown]

NARRATIVE: CASE EVENT DATE: 20231030
